FAERS Safety Report 8293304-6 (Version None)
Quarter: 2012Q2

REPORT INFORMATION
  Report Type: 
  Country: None (occurrence: None)
  Receive Date: 20120417
  Receipt Date: 20110908
  Transmission Date: 20120825
  Serious: No
  Sender: FDA-Public Use
  Company Number: US-ASTRAZENECA-2011SE53969

PATIENT
  Sex: Female

DRUGS (1)
  1. NEXIUM [Suspect]
     Indication: ABDOMINAL DISCOMFORT
     Route: 048

REACTIONS (5)
  - MALAISE [None]
  - BONE DISORDER [None]
  - HEADACHE [None]
  - GINGIVAL ERYTHEMA [None]
  - DRY MOUTH [None]
